FAERS Safety Report 8470985-5 (Version None)
Quarter: 2012Q2

REPORT INFORMATION
  Report Type: 
  Country: None (occurrence: None)
  Receive Date: 20120323
  Receipt Date: 20110824
  Transmission Date: 20120825
  Serious: Yes (Hospitalization)
  Sender: FDA-Public Use
  Company Number: 163-21880-11082906

PATIENT
  Age: 73 Year
  Sex: Female

DRUGS (18)
  1. LACTULOSE [Concomitant]
  2. CLARINEX [Concomitant]
  3. OXYCODONE HCL [Concomitant]
  4. MILK OF MAGNESIA TAB [Concomitant]
  5. LORAZEPAM [Concomitant]
  6. CYCLOBENZAPRINE [Concomitant]
  7. AREDIA [Concomitant]
  8. REQUIP [Concomitant]
  9. DOCUSATE SODIUM [Concomitant]
  10. AMOXICILLIN [Concomitant]
  11. ACETAMINOPHEN [Concomitant]
  12. BISMUTH SUBSALICYLATE [Concomitant]
  13. SENNOSIDES (SENNOSIDE A+B) [Concomitant]
  14. REVLIMID [Suspect]
     Indication: MULTIPLE MYELOMA
     Dosage: 10 MG, QOD X21D OFF 7D, PO
     Route: 048
     Dates: start: 20110729
  15. FENTANYL-100 [Concomitant]
  16. MIRALAX [Concomitant]
  17. CALCIUM + D(VITACAL) [Concomitant]
  18. ALPRAZOLAM [Concomitant]

REACTIONS (3)
  - RED BLOOD CELL COUNT DECREASED [None]
  - STAPHYLOCOCCAL INFECTION [None]
  - DEHYDRATION [None]
